FAERS Safety Report 6772000-8 (Version None)
Quarter: 2010Q2

REPORT INFORMATION
  Report Type: 
  Country: None (occurrence: None)
  Receive Date: 20100616
  Receipt Date: 20100222
  Transmission Date: 20101027
  Serious: No
  Sender: FDA-Public Use
  Company Number: US-ASTRAZENECA-2009SE30886

PATIENT
  Age: 50 Year
  Sex: Male
  Weight: 90.7 kg

DRUGS (2)
  1. RHINICORT AQUA [Suspect]
     Indication: MULTIPLE ALLERGIES
     Route: 045
     Dates: start: 20040101, end: 20091001
  2. SINGULAIR [Concomitant]
     Indication: MULTIPLE ALLERGIES

REACTIONS (3)
  - INTRAOCULAR PRESSURE INCREASED [None]
  - RETINOPATHY [None]
  - VISUAL ACUITY REDUCED [None]
